FAERS Safety Report 6755486-4 (Version None)
Quarter: 2010Q2

REPORT INFORMATION
  Report Type: 
  Country: None (occurrence: None)
  Receive Date: 20100604
  Receipt Date: 20100527
  Transmission Date: 20101027
  Serious: Yes (Hospitalization)
  Sender: FDA-Public Use
  Company Number: AT-JNJFOC-20100510250

PATIENT
  Age: 83 Year
  Sex: Female

DRUGS (11)
  1. TAVANIC [Suspect]
     Indication: DRUG USE FOR UNKNOWN INDICATION
     Route: 042
  2. TAVANIC [Suspect]
     Indication: PARANASAL CYST
     Route: 048
  3. TAVANIC [Suspect]
     Indication: INFECTION
     Route: 048
  4. CLINDAMYCIN HCL [Suspect]
     Indication: DRUG USE FOR UNKNOWN INDICATION
     Route: 042
  5. FOSFOMYCIN [Suspect]
     Indication: DRUG USE FOR UNKNOWN INDICATION
     Route: 042
  6. DIBONDRIN [Concomitant]
     Route: 065
  7. LEVOTHYROXINE SODIUM [Concomitant]
     Route: 065
  8. METOGASTRON [Concomitant]
     Route: 065
  9. PANTOPRAZOLE [Concomitant]
     Route: 065
  10. ZYVOXID [Concomitant]
     Route: 065
  11. AMLODIPINE [Concomitant]
     Route: 065

REACTIONS (7)
  - CYANOSIS [None]
  - DIZZINESS [None]
  - DRUG ERUPTION [None]
  - DRUG HYPERSENSITIVITY [None]
  - DRUG INTOLERANCE [None]
  - NAUSEA [None]
  - TACHYCARDIA [None]
